FAERS Safety Report 5745743-2 (Version None)
Quarter: 2008Q2

REPORT INFORMATION
  Report Type: 
  Country: None (occurrence: None)
  Receive Date: 20080521
  Receipt Date: 20080512
  Transmission Date: 20081010
  Serious: Yes (Other)
  Sender: FDA-Public Use
  Company Number: JP-PFIZER INC-2008041470

PATIENT
  Age: 85 Year
  Sex: Male

DRUGS (6)
  1. DIFLUCAN [Suspect]
     Indication: EYE INFECTION FUNGAL
     Dosage: DAILY DOSE:400MG
     Route: 042
  2. PLAVIX [Suspect]
     Dosage: DAILY DOSE:75MG
     Route: 048
  3. ALLOPURINOL [Suspect]
     Dosage: DAILY DOSE:100MG
     Route: 048
  4. ITOROL [Concomitant]
     Route: 048
  5. MARZULENE S [Concomitant]
     Route: 048
  6. NIZATIDINE [Concomitant]
     Route: 048

REACTIONS (3)
  - CARDIAC FAILURE [None]
  - HEPATIC FUNCTION ABNORMAL [None]
  - PLATELET COUNT DECREASED [None]
